FAERS Safety Report 6438115-9 (Version None)
Quarter: 2009Q4

REPORT INFORMATION
  Report Type: 
  Country: None (occurrence: None)
  Receive Date: 20091112
  Receipt Date: 20091102
  Transmission Date: 20100525
  Serious: Yes (Other)
  Sender: FDA-Public Use
  Company Number: US-JNJCH-2009029087

PATIENT
  Age: 20 Year
  Sex: Male

DRUGS (2)
  1. LUDENS THROAT DROPS WILD CHERRY [Suspect]
     Indication: DRUG USE FOR UNKNOWN INDICATION
     Dosage: TEXT:HALF BOX  ONCE
     Route: 048
     Dates: start: 20091102, end: 20091102
  2. ADVIL [Suspect]
     Indication: DRUG USE FOR UNKNOWN INDICATION
     Dosage: TEXT:1 TABLET DAILY
     Route: 048

REACTIONS (3)
  - HYPOAESTHESIA FACIAL [None]
  - PARAESTHESIA [None]
  - SUFFOCATION FEELING [None]
